FAERS Safety Report 13913051 (Version 1)
Quarter: 2017Q3

REPORT INFORMATION
  Report Type: Spontaneous
  Country: US (occurrence: US)
  Receive Date: 20170828
  Receipt Date: 20170828
  Transmission Date: 20171127
  Serious: No
  Sender: FDA-Public Use
  Company Number: US-PRINSTON PHARMACEUTICAL INC.-2016PRN00232

PATIENT
  Age: 74 Year
  Sex: Female
  Weight: 75.74 kg

DRUGS (8)
  1. LISINOPRIL. [Suspect]
     Active Substance: LISINOPRIL
     Indication: HYPERTENSION
     Dosage: 20 MG, 1X/DAY
     Route: 048
     Dates: start: 201608, end: 201608
  2. OCUVITE [Concomitant]
     Active Substance: VITAMINS
     Dosage: 1 TABLETS, 1X/DAY
  3. LISINOPRIL. [Suspect]
     Active Substance: LISINOPRIL
     Dosage: 10 MG, 2X/DAY
     Route: 048
     Dates: start: 201608, end: 20160825
  4. AMLODIPINE 10 MG (CAMBER PHARMACEUTICALS) [Concomitant]
     Dosage: 10 MG, 1X/DAY
     Dates: start: 1996
  5. LISINOPRIL. [Suspect]
     Active Substance: LISINOPRIL
     Dosage: 5 MG, 4X/DAY
     Route: 048
     Dates: start: 20160825, end: 20160901
  6. VITAMIN D3 [Concomitant]
     Active Substance: CHOLECALCIFEROL
     Dosage: 1 TABLETS, 1X/DAY
  7. WOMEN^S MULTIVITAMIN [Concomitant]
     Dosage: 1 TABLETS, 1X/DAY
  8. LEVOTHYROXINE SODIUM. [Concomitant]
     Active Substance: LEVOTHYROXINE SODIUM
     Dosage: 0.1 MG, 1X/DAY

REACTIONS (3)
  - Headache [Recovered/Resolved]
  - Pain in jaw [Recovered/Resolved]
  - Cough [Recovered/Resolved]

NARRATIVE: CASE EVENT DATE: 201608
